FAERS Safety Report 5075580-6 (Version None)
Quarter: 2006Q3

REPORT INFORMATION
  Report Type: 
  Country: None (occurrence: None)
  Receive Date: 20060809
  Receipt Date: 20060711
  Transmission Date: 20061208
  Serious: Yes (Hospitalization)
  Sender: FDA-Public Use
  Company Number: DE-ROCHE-457200

PATIENT
  Age: 65 Year
  Sex: Male

DRUGS (4)
  1. RIBAVIRIN [Suspect]
     Indication: HEPATITIS C
     Route: 048
     Dates: start: 20040622, end: 20041130
  2. INTERFERON ALFACON-1 [Suspect]
     Indication: HEPATITIS C
     Route: 058
     Dates: start: 20040324, end: 20041130
  3. BISOPROLOL FUMARATE [Concomitant]
  4. SPIRONOLACTONE [Concomitant]

REACTIONS (7)
  - ASCITES [None]
  - ASTHENIA [None]
  - DISTURBANCE IN ATTENTION [None]
  - HEPATIC CIRRHOSIS [None]
  - LETHARGY [None]
  - ORAL INTAKE REDUCED [None]
  - URINARY TRACT INFECTION [None]
